FAERS Safety Report 4596153-5 (Version None)
Quarter: 2005Q1

REPORT INFORMATION
  Report Type: 
  Country: None (occurrence: None)
  Receive Date: 20050225
  Receipt Date: 20050215
  Transmission Date: 20050727
  Serious: Yes (Life-Threatening, Hospitalization)
  Sender: FDA-Public Use
  Company Number: 019-05

PATIENT
  Age: 70 Year
  Sex: Male

DRUGS (7)
  1. INDOMETHACIN [Suspect]
     Indication: ARTHRITIS
     Dosage: 75 MG ONCE DAILY PO
     Route: 048
     Dates: start: 19850101
  2. ZETIA [Concomitant]
  3. LIPITOR [Concomitant]
  4. DIGOXIN [Concomitant]
  5. COREG [Concomitant]
  6. WARFARIN SODIUM [Concomitant]
  7. UNSPECIFIED THERAPY ^ABUTILON^ [Concomitant]

REACTIONS (3)
  - ARTERIAL OCCLUSIVE DISEASE [None]
  - CARDIAC FAILURE [None]
  - PULMONARY OEDEMA [None]
